FAERS Safety Report 25351397 (Version 2)
Quarter: 2025Q2

REPORT INFORMATION
  Report Type: Spontaneous
  Country: JP (occurrence: JP)
  Receive Date: 20250523
  Receipt Date: 20250621
  Transmission Date: 20250717
  Serious: Yes (Hospitalization, Other)
  Sender: MACLEODS
  Company Number: JP-MACLEODS PHARMA-MAC2025053153

PATIENT

DRUGS (11)
  1. MEMANTINE [Suspect]
     Active Substance: MEMANTINE
     Indication: Dementia Alzheimer^s type
     Route: 065
  2. MEMANTINE [Suspect]
     Active Substance: MEMANTINE
     Route: 065
  3. DONEPEZIL [Suspect]
     Active Substance: DONEPEZIL
     Indication: Dementia Alzheimer^s type
     Route: 065
  4. DONEPEZIL [Suspect]
     Active Substance: DONEPEZIL
     Route: 065
  5. QUETIAPINE [Suspect]
     Active Substance: QUETIAPINE
     Indication: Poor quality sleep
     Dosage: BEFORE BEDTIME
     Route: 065
  6. QUETIAPINE [Suspect]
     Active Substance: QUETIAPINE
     Indication: Dementia Alzheimer^s type
     Dosage: BEFORE BEDTIME
     Route: 065
  7. QUETIAPINE [Suspect]
     Active Substance: QUETIAPINE
     Dosage: BEFORE BEDTIME
     Route: 065
  8. QUETIAPINE [Suspect]
     Active Substance: QUETIAPINE
     Dosage: BEFORE BEDTIME, ON DAY 55, DOSAGE WAS INCREASED
     Route: 065
  9. RISPERIDONE [Suspect]
     Active Substance: RISPERIDONE
     Indication: Dementia Alzheimer^s type
     Route: 065
  10. LEMBOREXANT [Concomitant]
     Active Substance: LEMBOREXANT
     Indication: Dementia Alzheimer^s type
     Route: 065
  11. LEMBOREXANT [Concomitant]
     Active Substance: LEMBOREXANT
     Route: 065

REACTIONS (5)
  - Renal impairment [Recovering/Resolving]
  - Hyperuricaemia [Recovered/Resolved]
  - Constipation [Unknown]
  - Middle insomnia [Unknown]
  - Condition aggravated [Unknown]
